FAERS Safety Report 10684622 (Version 1)
Quarter: 2014Q4

REPORT INFORMATION
  Report Type: Spontaneous
  Country: GB (occurrence: None)
  Receive Date: 20141229
  Receipt Date: 20141229
  Transmission Date: 20150529
  Serious: Yes (Other)
  Sender: FDA-Public Use
  Company Number: 2680933

PATIENT
  Age: 24 Year
  Sex: Male

DRUGS (1)
  1. ATRACURIUM BESILATE [Suspect]
     Active Substance: ATRACURIUM BESYLATE
     Indication: ANAESTHESIA
     Dosage: 35 MG MILLIGRAM(S), UNKNOWN, UNKNOWN

REACTIONS (2)
  - Respiratory arrest [None]
  - Drug effect decreased [None]

NARRATIVE: CASE EVENT DATE: 20140721
